FAERS Safety Report 16576511 (Version 1)
Quarter: 2019Q3

REPORT INFORMATION
  Report Type: Spontaneous
  Country: US (occurrence: US)
  Receive Date: 20190716
  Receipt Date: 20190716
  Transmission Date: 20191004
  Serious: No
  Sender: FDA-Public Use
  Company Number: US-SWEDISH ORPHAN BIOVITRUM-2018US0833

PATIENT
  Sex: Female

DRUGS (6)
  1. OMEPRAZOLE. [Concomitant]
     Active Substance: OMEPRAZOLE
  2. VITAMIN D [Concomitant]
     Active Substance: VITAMIN D NOS
  3. LORATADINE. [Concomitant]
     Active Substance: LORATADINE
  4. EFFEXOR [Concomitant]
     Active Substance: VENLAFAXINE HYDROCHLORIDE
  5. BREXPIPRAZOLE [Concomitant]
     Active Substance: BREXPIPRAZOLE
  6. ORFADIN [Suspect]
     Active Substance: NITISINONE
     Indication: TYROSINAEMIA
     Route: 048

REACTIONS (4)
  - Gastroenteritis viral [Unknown]
  - Diarrhoea [Unknown]
  - Nausea [Unknown]
  - Weight decreased [Unknown]
